FAERS Safety Report 22272776 (Version 4)
Quarter: 2025Q3

REPORT INFORMATION
  Report Type: Spontaneous
  Country: US (occurrence: US)
  Receive Date: 20230502
  Receipt Date: 20250828
  Transmission Date: 20251021
  Serious: Yes (Other)
  Sender: CIPLA
  Company Number: US-CIPLA LTD.-2023US01824

PATIENT

DRUGS (1)
  1. SAJAZIR [Suspect]
     Active Substance: ICATIBANT ACETATE
     Indication: Hereditary angioedema
     Route: 058
     Dates: start: 20230228, end: 20240830

REACTIONS (7)
  - Suicidal ideation [Recovered/Resolved]
  - Angioedema [Unknown]
  - Hypertension [Recovered/Resolved]
  - Oral pain [Recovered/Resolved]
  - Feeling abnormal [Recovered/Resolved]
  - Fatigue [Recovered/Resolved]
  - Complement factor abnormal [Unknown]

NARRATIVE: CASE EVENT DATE: 20230101
